FAERS Safety Report 18241971 (Version 2)
Quarter: 2020Q4

REPORT INFORMATION
  Report Type: Report from Study
  Country: CN (occurrence: CN)
  Receive Date: 20200908
  Receipt Date: 20201019
  Transmission Date: 20210113
  Serious: Yes (Death)
  Sender: FDA-Public Use
  Company Number: CN-PFIZER INC-2020344185

PATIENT
  Age: 6 Year
  Sex: Male
  Weight: 21 kg

DRUGS (15)
  1. CICLOSPORIN [Suspect]
     Active Substance: CYCLOSPORINE
     Indication: GRAFT VERSUS HOST DISEASE
     Dosage: UNK
     Dates: start: 2019
  2. TAZOCIN [Suspect]
     Active Substance: PIPERACILLIN SODIUM\TAZOBACTAM SODIUM
     Indication: ENTERITIS INFECTIOUS
  3. TIGECYCLINE. [Suspect]
     Active Substance: TIGECYCLINE
     Indication: BACTERIAL INFECTION
     Dosage: 50 MG, 2X/DAY (EVERY 12H)
  4. SULPERAZON [Suspect]
     Active Substance: CEFOPERAZONE SODIUM\SULBACTAM SODIUM
     Indication: BACTERIAL INFECTION
  5. TIENAM [Suspect]
     Active Substance: CILASTATIN SODIUM\IMIPENEM
     Indication: BACTERIAL INFECTION
  6. MAXIPIME [Suspect]
     Active Substance: CEFEPIME HYDROCHLORIDE
     Indication: BACTERIAL INFECTION
  7. TIENAM [Suspect]
     Active Substance: CILASTATIN SODIUM\IMIPENEM
     Indication: GRAFT VERSUS HOST DISEASE
     Dosage: 0.68 G, 4X/DAY
     Dates: start: 2019
  8. TAZOCIN [Suspect]
     Active Substance: PIPERACILLIN SODIUM\TAZOBACTAM SODIUM
     Indication: GRAFT VERSUS HOST DISEASE
     Dosage: 2.25 G, 3X/DAY(Q8H)
     Dates: start: 2019, end: 2019
  9. SULPERAZON [Suspect]
     Active Substance: CEFOPERAZONE SODIUM\SULBACTAM SODIUM
     Indication: GRAFT VERSUS HOST DISEASE
     Dosage: 1.5 G, 3X/DAY
     Dates: start: 2019
  10. VANCOMYCIN [Suspect]
     Active Substance: VANCOMYCIN
     Indication: GRAFT VERSUS HOST DISEASE
     Dosage: 0.4 G, 2X/DAY
     Dates: start: 2019
  11. VANCOMYCIN [Suspect]
     Active Substance: VANCOMYCIN
     Indication: BACTERIAL INFECTION
  12. MAXIPIME [Suspect]
     Active Substance: CEFEPIME HYDROCHLORIDE
     Indication: GRAFT VERSUS HOST DISEASE
     Dosage: 1 G, 3X/DAY
     Dates: start: 2019
  13. METHYLPREDNISOLONE. [Suspect]
     Active Substance: METHYLPREDNISOLONE
     Indication: GRAFT VERSUS HOST DISEASE
     Dosage: UNK
     Dates: start: 2019
  14. LUCITANIB. [Suspect]
     Active Substance: LUCITANIB
     Indication: GRAFT VERSUS HOST DISEASE
     Dosage: UNK
     Dates: start: 2019
  15. TIGECYCLINE. [Suspect]
     Active Substance: TIGECYCLINE
     Indication: GRAFT VERSUS HOST DISEASE
     Dosage: 25 MG, 2X/DAY (EVERY 12H)
     Dates: start: 2019

REACTIONS (4)
  - Escherichia infection [Fatal]
  - Urinary tract infection bacterial [Fatal]
  - Off label use [Unknown]
  - Drug ineffective [Fatal]

NARRATIVE: CASE EVENT DATE: 2019
